FAERS Safety Report 6203844-9 (Version None)
Quarter: 2009Q2

REPORT INFORMATION
  Report Type: 
  Country: None (occurrence: None)
  Receive Date: 20090527
  Receipt Date: 20090522
  Transmission Date: 20091009
  Serious: Yes (Hospitalization, Disabling)
  Sender: FDA-Public Use
  Company Number: US-PFIZER INC-2009216809

PATIENT
  Sex: Male
  Weight: 108 kg

DRUGS (13)
  1. NAPROXEN [Suspect]
     Indication: OSTEOARTHRITIS
     Dosage: UNK
     Route: 048
     Dates: start: 20090120, end: 20090423
  2. BLINDED *PLACEBO [Suspect]
     Indication: OSTEOARTHRITIS
     Dosage: UNK
     Route: 048
     Dates: start: 20090120, end: 20090423
  3. BLINDED CELECOXIB [Suspect]
     Indication: OSTEOARTHRITIS
     Dosage: UNK
     Route: 048
     Dates: start: 20090120, end: 20090423
  4. IBUPROFEN [Suspect]
     Indication: OSTEOARTHRITIS
     Dosage: UNK
     Route: 048
     Dates: start: 20090120, end: 20090423
  5. NAPROXEN [Suspect]
     Dosage: UNK
     Route: 048
     Dates: start: 20090120, end: 20090423
  6. NAPROXEN [Suspect]
     Dosage: UNK
     Route: 048
     Dates: start: 20090504
  7. BLINDED *PLACEBO [Suspect]
     Dosage: UNK
     Route: 048
     Dates: start: 20090504
  8. BLINDED CELECOXIB [Suspect]
     Dosage: UNK
     Route: 048
     Dates: start: 20090504
  9. IBUPROFEN [Suspect]
     Dosage: UNK
     Route: 048
     Dates: start: 20090504
  10. NAPROXEN [Suspect]
     Dosage: UNK
     Route: 048
     Dates: start: 20090504
  11. NEXIUM [Concomitant]
     Dosage: UNK
     Route: 048
     Dates: start: 20090120
  12. ZOCOR [Concomitant]
     Dosage: UNK
     Route: 048
     Dates: start: 20090106
  13. LOTREL [Concomitant]
     Dosage: UNK
     Route: 048
     Dates: start: 20050418

REACTIONS (1)
  - NERVE COMPRESSION [None]
